FAERS Safety Report 9675705 (Version 2)
Quarter: 2013Q4

REPORT INFORMATION
  Report Type: Report from Study
  Country: US (occurrence: US)
  Receive Date: 20131107
  Receipt Date: 20131107
  Transmission Date: 20140711
  Serious: Yes (Hospitalization)
  Sender: FDA-Public Use
  Company Number: US-ACTELION-A-NJ2013-78434

PATIENT
  Age: 74 Year
  Sex: Female

DRUGS (11)
  1. TRACLEER [Suspect]
     Indication: PULMONARY ARTERIAL HYPERTENSION
     Dosage: 125 MG, BID
     Route: 048
     Dates: start: 2011
  2. TRACLEER [Suspect]
     Dosage: 62.5 MG, BID
     Route: 048
     Dates: start: 201103, end: 2011
  3. OXYGEN [Concomitant]
     Dosage: 5 L, UNK
  4. FUROSEMIDE [Concomitant]
     Dosage: 40 MG, UNK
  5. SPIRONOLACTONE [Concomitant]
     Dosage: 25 MG, QD
     Dates: start: 2012
  6. LABETALOL [Concomitant]
     Dosage: 300 MG, UNK
  7. METHOCARBAMOL [Concomitant]
     Dosage: 750 MG, QD
     Dates: start: 2012
  8. BACLOFEN [Concomitant]
     Dosage: 20 MG, BID
     Dates: start: 2012
  9. METHADONE [Concomitant]
     Dosage: 10 MG, TID
     Route: 048
     Dates: start: 2013
  10. TRAZODONE [Concomitant]
     Dosage: 50 MG, UNK
     Dates: start: 201308
  11. SENNA [Concomitant]
     Dosage: 3 UNK, QD

REACTIONS (6)
  - Muscle spasms [Recovered/Resolved]
  - Dyspnoea [Recovered/Resolved]
  - Arthritis [Unknown]
  - Gait disturbance [Unknown]
  - Malaise [Unknown]
  - Insomnia [Recovered/Resolved]
